FAERS Safety Report 16735894 (Version 1)
Quarter: 2019Q3

REPORT INFORMATION
  Report Type: Spontaneous
  Country: CN (occurrence: CN)
  Receive Date: 20190823
  Receipt Date: 20190823
  Transmission Date: 20191005
  Serious: Yes (Other)
  Sender: FDA-Public Use
  Company Number: CN-ROCHE-2379886

PATIENT
  Age: 48 Year
  Sex: Male
  Weight: 56 kg

DRUGS (7)
  1. BEVACIZUMAB. [Suspect]
     Active Substance: BEVACIZUMAB
     Indication: RECTAL CANCER METASTATIC
     Route: 065
     Dates: start: 20180810, end: 20181019
  2. CAPECITABINE. [Suspect]
     Active Substance: CAPECITABINE
     Route: 048
     Dates: start: 20190210
  3. OXALIPLATIN. [Suspect]
     Active Substance: OXALIPLATIN
     Route: 065
     Dates: start: 20181019
  4. BEVACIZUMAB. [Suspect]
     Active Substance: BEVACIZUMAB
     Route: 065
     Dates: start: 20190117
  5. OXALIPLATIN. [Suspect]
     Active Substance: OXALIPLATIN
     Indication: RECTAL CANCER METASTATIC
     Route: 065
     Dates: start: 20180810
  6. CAPECITABINE. [Suspect]
     Active Substance: CAPECITABINE
     Route: 048
     Dates: start: 20181019
  7. CAPECITABINE. [Suspect]
     Active Substance: CAPECITABINE
     Indication: RECTAL CANCER METASTATIC
     Route: 048
     Dates: start: 20180810

REACTIONS (1)
  - Bone marrow failure [Unknown]
